FAERS Safety Report 9515414 (Version 1)
Quarter: 2013Q3

REPORT INFORMATION
  Report Type: Spontaneous
  Country: US (occurrence: US)
  Receive Date: 20130911
  Receipt Date: 20130911
  Transmission Date: 20140515
  Serious: Yes (Other)
  Sender: FDA-Public Use
  Company Number: PHEH2013US018652

PATIENT
  Sex: Male

DRUGS (10)
  1. MYFORTIC [Suspect]
     Dosage: 360 MG, BID (2 TABLETS)
  2. MYFORTIC [Suspect]
     Dosage: UNK
  3. PROGRAF [Concomitant]
     Dosage: 4 MG, BID
  4. PROGERIL [Concomitant]
     Dosage: 4 MG, BID
  5. PREDNISONE [Concomitant]
     Dosage: 5 MG, QD
  6. RANITIDINE [Concomitant]
     Dosage: 150 MG, BID
  7. CLONIDINE [Concomitant]
     Dosage: 0.2 MG, QD
  8. FISH OIL [Concomitant]
     Dosage: 1000 MG, BID
  9. CENTRUM [Concomitant]
     Dosage: UNK UKN, QD
  10. MYCOPHENOLIC ACID [Concomitant]
     Dosage: UNK UKN, UNK

REACTIONS (1)
  - Pancreatic disorder [Unknown]
